FAERS Safety Report 5987776-7 (Version None)
Quarter: 2008Q4

REPORT INFORMATION
  Report Type: 
  Country: None (occurrence: None)
  Receive Date: 20081209
  Receipt Date: 20080310
  Transmission Date: 20090506
  Serious: No
  Sender: FDA-Public Use
  Company Number: US-BAYER-200817024NA

PATIENT
  Age: 58 Year
  Sex: Female

DRUGS (4)
  1. CLIMARA PRO [Suspect]
     Indication: DRUG USE FOR UNKNOWN INDICATION
     Route: 062
  2. CLIMARA PRO [Suspect]
     Route: 062
     Dates: start: 20060119
  3. PROMETRIUM [Concomitant]
     Route: 048
     Dates: start: 20071101
  4. ASTELIN N/S [Concomitant]
     Route: 045

REACTIONS (5)
  - APPLICATION SITE ERYTHEMA [None]
  - HYPERSENSITIVITY [None]
  - INFLAMMATION [None]
  - PRURITUS [None]
  - RASH [None]
